FAERS Safety Report 8300030 (Version 2)
Quarter: 2015Q1

REPORT INFORMATION
  Report Type: Spontaneous
  Country: US (occurrence: US)
  Receive Date: 20111219
  Receipt Date: 20150320
  Transmission Date: 20150721
  Serious: Yes (Other)
  Sender: FDA-Public Use
  Company Number: US-ASTRAZENECA-2011SE43105

PATIENT
  Sex: Female

DRUGS (2)
  1. VICODIN [Concomitant]
     Active Substance: ACETAMINOPHEN\HYDROCODONE BITARTRATE
  2. CRESTOR [Suspect]
     Active Substance: ROSUVASTATIN CALCIUM
     Route: 048

REACTIONS (7)
  - Back disorder [Unknown]
  - Breast cancer [Unknown]
  - Cardiovascular disorder [Unknown]
  - Ligament rupture [Unknown]
  - Pain [Unknown]
  - Musculoskeletal discomfort [Unknown]
  - Hypertension [Unknown]
